FAERS Safety Report 15768175 (Version 1)
Quarter: 2018Q4

REPORT INFORMATION
  Report Type: Spontaneous
  Country: JP (occurrence: JP)
  Receive Date: 20181227
  Receipt Date: 20181227
  Transmission Date: 20190205
  Serious: Yes (Other)
  Sender: FDA-Public Use
  Company Number: JP-TEVA-2018-JP-993492

PATIENT
  Age: 55 Year
  Sex: Female

DRUGS (3)
  1. LYSOZYME HYDROCHLORIDE [Concomitant]
     Active Substance: LYSOZYME HYDROCHLORIDE
     Indication: SINUSITIS
     Dosage: 90 MILLIGRAM DAILY;
     Route: 048
  2. CLARITHROMYCIN. [Suspect]
     Active Substance: CLARITHROMYCIN
     Indication: SINUSITIS
     Dosage: 400 MILLIGRAM DAILY;
     Route: 048
  3. CLARITHROMYCIN. [Suspect]
     Active Substance: CLARITHROMYCIN
     Dosage: 200 MILLIGRAM DAILY; DOSE REDUCED ON THE 14TH DAY FOLLOWING INITIATION.
     Route: 048

REACTIONS (1)
  - Rash maculo-papular [Recovered/Resolved]
